FAERS Safety Report 7361895-5 (Version None)
Quarter: 2011Q1

REPORT INFORMATION
  Report Type: 
  Country: None (occurrence: None)
  Receive Date: 20110318
  Receipt Date: 20110307
  Transmission Date: 20110831
  Serious: Yes (Hospitalization, Other)
  Sender: FDA-Public Use
  Company Number: TH-PFIZER INC-2011023449

PATIENT
  Age: 15 Year
  Sex: Male
  Weight: 52 kg

DRUGS (10)
  1. ELSPAR [Concomitant]
     Indication: CHEMOTHERAPY
  2. METHOTREXATE [Concomitant]
     Indication: CHEMOTHERAPY
  3. VINCRISTINE [Concomitant]
     Indication: CHEMOTHERAPY
  4. VORICONAZOLE [Suspect]
     Dosage: 220 MG, 2X/DAY
     Route: 042
     Dates: start: 20101223, end: 20110101
  5. DEXAMETHASONE [Suspect]
  6. CALCIUM CARBONATE [Concomitant]
     Indication: SUPPLEMENTATION THERAPY
     Dosage: 1000 MG, 2X/DAY
     Route: 048
     Dates: start: 20101230
  7. IDARUBICIN [Concomitant]
     Indication: CHEMOTHERAPY
  8. VORICONAZOLE [Suspect]
     Indication: ASPERGILLOSIS
     Dosage: 300 MG, 2X/DAY
     Route: 048
     Dates: start: 20110106, end: 20110131
  9. MULTI-VITAMINS [Concomitant]
     Indication: SUPPLEMENTATION THERAPY
     Dosage: UNK
     Route: 048
     Dates: start: 20101230
  10. NORMAL SALINE [Concomitant]
     Dosage: 10 ML, 4X/DAY
     Route: 045
     Dates: start: 20101224

REACTIONS (2)
  - HY'S LAW CASE [None]
  - MUSCULAR WEAKNESS [None]
